FAERS Safety Report 12547877 (Version 1)
Quarter: 2016Q3

REPORT INFORMATION
  Report Type: Spontaneous
  Country: US (occurrence: US)
  Receive Date: 20160712
  Receipt Date: 20160712
  Transmission Date: 20161109
  Serious: Yes (Hospitalization, Other)
  Sender: FDA-Public Use
  Company Number: US-ALEMBIC PHARMACUETICALS LIMITED-2016SCAL000557

PATIENT

DRUGS (1)
  1. LITHIUM CARBONATE. [Suspect]
     Active Substance: LITHIUM CARBONATE
     Indication: PRODUCT USED FOR UNKNOWN INDICATION
     Dosage: UNK

REACTIONS (9)
  - Atrioventricular block [Unknown]
  - Toxicity to various agents [Unknown]
  - Mitral valve incompetence [Unknown]
  - Endocarditis [Unknown]
  - Mitral valve disease [Unknown]
  - Staphylococcal infection [Unknown]
  - Embolic stroke [Unknown]
  - Device related infection [Unknown]
  - End stage renal disease [Unknown]
